FAERS Safety Report 25427173 (Version 1)
Quarter: 2025Q2

REPORT INFORMATION
  Report Type: Spontaneous
  Country: US (occurrence: US)
  Receive Date: 20250612
  Receipt Date: 20250612
  Transmission Date: 20250717
  Serious: No
  Sender: AVYXA HOLDINGS, LLC
  Company Number: US-AVYXA HOLDINGS, LLC-2025AVY000026

PATIENT

DRUGS (5)
  1. DOCIVYX [Suspect]
     Active Substance: DOCETAXEL
     Indication: Breast cancer female
     Route: 042
  2. CARBOPLATIN [Suspect]
     Active Substance: CARBOPLATIN
     Indication: Breast cancer female
     Route: 065
  3. OGIVRI [Suspect]
     Active Substance: TRASTUZUMAB-DKST
     Indication: Breast cancer female
     Route: 065
  4. PERJETA [Suspect]
     Active Substance: PERTUZUMAB
     Indication: Breast cancer female
     Route: 065
  5. ROLVEDON [Concomitant]
     Active Substance: EFLAPEGRASTIM-XNST
     Indication: Product used for unknown indication
     Route: 065

REACTIONS (1)
  - Off label use [Unknown]
